FAERS Safety Report 8445748-7 (Version None)
Quarter: 2012Q2

REPORT INFORMATION
  Report Type: 
  Country: None (occurrence: None)
  Receive Date: 20120618
  Receipt Date: 20120611
  Transmission Date: 20120825
  Serious: Yes (Hospitalization)
  Sender: FDA-Public Use
  Company Number: FR-GLAXOSMITHKLINE-B0807179A

PATIENT
  Sex: Male

DRUGS (10)
  1. DEBRIDAT [Concomitant]
     Route: 065
  2. PAROXETINE HCL [Suspect]
     Indication: PRODUCT USED FOR UNKNOWN INDICATION
     Dosage: 20MG IN THE MORNING
     Route: 048
     Dates: start: 20120511
  3. ATARAX [Concomitant]
     Dosage: 25MG PER DAY
     Route: 048
     Dates: start: 20120510
  4. TRANSIPEG [Concomitant]
     Route: 065
  5. VALIUM [Concomitant]
     Route: 065
     Dates: end: 20120510
  6. ZOLPIDEM TARTRATE [Concomitant]
     Dosage: 1UNIT AT NIGHT
     Route: 048
     Dates: start: 20120510
  7. TIAPRIDAL [Concomitant]
     Route: 065
  8. PRAZEPAM [Concomitant]
     Route: 065
     Dates: end: 20120510
  9. MOTILIUM [Concomitant]
     Route: 065
  10. TADENAN [Concomitant]
     Route: 065

REACTIONS (4)
  - HYPONATRAEMIA [None]
  - CONVULSION [None]
  - ALTERED STATE OF CONSCIOUSNESS [None]
  - HYPOTHERMIA [None]
